FAERS Safety Report 25130775 (Version 1)
Quarter: 2025Q1

REPORT INFORMATION
  Report Type: Spontaneous
  Country: CN (occurrence: CN)
  Receive Date: 20250327
  Receipt Date: 20250327
  Transmission Date: 20250409
  Serious: Yes (Hospitalization, Other)
  Sender: ASTELLAS
  Company Number: CN-ASTELLAS-2025-AER-016792

PATIENT
  Age: 32 Year
  Sex: Male

DRUGS (2)
  1. TACROLIMUS [Suspect]
     Active Substance: TACROLIMUS
     Indication: Liver transplant
     Route: 065
  2. MYCOPHENOLIC ACID [Concomitant]
     Active Substance: MYCOPHENOLIC ACID
     Indication: Liver transplant
     Route: 065

REACTIONS (5)
  - Cholestasis [Recovered/Resolved]
  - Condition aggravated [Recovered/Resolved]
  - Cholangitis infective [Recovered/Resolved]
  - Hepatitis B virus test positive [Recovered/Resolved]
  - Biliary cast syndrome [Recovered/Resolved]
